FAERS Safety Report 9501412 (Version 1)
Quarter: 2013Q3

REPORT INFORMATION
  Report Type: Spontaneous
  Country: FR (occurrence: FR)
  Receive Date: 20130905
  Receipt Date: 20130905
  Transmission Date: 20140515
  Serious: Yes (Hospitalization)
  Sender: FDA-Public Use
  Company Number: FR-UCBSA-094071

PATIENT
  Sex: Female

DRUGS (1)
  1. QUASYM LP [Suspect]
     Dosage: 30 MG
     Route: 048
     Dates: start: 201305, end: 201307

REACTIONS (1)
  - Arthralgia [Recovering/Resolving]
